FAERS Safety Report 8193528-2 (Version None)
Quarter: 2012Q1

REPORT INFORMATION
  Report Type: 
  Country: None (occurrence: None)
  Receive Date: 20120308
  Receipt Date: 20120301
  Transmission Date: 20120608
  Serious: Yes (Death)
  Sender: FDA-Public Use
  Company Number: CL-ROCHE-1045194

PATIENT
  Sex: Female
  Weight: 74 kg

DRUGS (1)
  1. XELODA [Suspect]
     Indication: COLON CANCER
     Dosage: 2000 MG IN MORNING AND 1500 MG AT THE NIGHT.
     Route: 048
     Dates: start: 20120125, end: 20120207

REACTIONS (2)
  - RESPIRATORY FAILURE [None]
  - TACHYCARDIA [None]
